FAERS Safety Report 5402384-4 (Version None)
Quarter: 2007Q3

REPORT INFORMATION
  Report Type: 
  Country: None (occurrence: None)
  Receive Date: 20070730
  Receipt Date: 20070730
  Transmission Date: 20080115
  Serious: Yes (Hospitalization)
  Sender: FDA-Public Use
  Company Number: None

PATIENT
  Age: 59 Year
  Sex: Male

DRUGS (2)
  1. AZITHROMYCIN [Suspect]
     Indication: DEEP VEIN THROMBOSIS
     Dosage: 250MG OTHER PO
     Route: 048
     Dates: start: 20070615, end: 20070714
  2. WARFARIN SODIUM [Suspect]
     Indication: INFECTION
     Dosage: 5MG EVERY DAY PO
     Route: 048
     Dates: start: 20070701, end: 20070714

REACTIONS (2)
  - DRUG INTERACTION [None]
  - INTERNATIONAL NORMALISED RATIO INCREASED [None]
